FAERS Safety Report 23420964 (Version 1)
Quarter: 2024Q1

REPORT INFORMATION
  Report Type: Spontaneous
  Country: JP (occurrence: JP)
  Receive Date: 20240119
  Receipt Date: 20240119
  Transmission Date: 20240410
  Serious: Yes (Death, Hospitalization, Other)
  Sender: FDA-Public Use
  Company Number: JP-SA-2024SA017915

PATIENT
  Age: 76 Year
  Sex: Female

DRUGS (3)
  1. OXALIPLATIN [Suspect]
     Active Substance: OXALIPLATIN
     Indication: Gastric cancer
     Dosage: UNK
  2. NIVOLUMAB [Suspect]
     Active Substance: NIVOLUMAB
     Indication: Gastric cancer
     Dosage: UNK
  3. GIMERACIL;IRINOTECAN;OTERACIL POTASSIUM;TEGAFUR [Concomitant]
     Dosage: UNK

REACTIONS (4)
  - Adrenal insufficiency [Fatal]
  - Lung disorder [Fatal]
  - Hepatic failure [Fatal]
  - Infection [Unknown]
